FAERS Safety Report 9884377 (Version 1)
Quarter: 2014Q1

REPORT INFORMATION
  Report Type: Spontaneous
  Country: US (occurrence: US)
  Receive Date: 20140210
  Receipt Date: 20140210
  Transmission Date: 20141002
  Serious: No
  Sender: FDA-Public Use
  Company Number: US-ALLERGAN-1319226US

PATIENT
  Age: 56 Year
  Sex: Female

DRUGS (1)
  1. BOTOX COSMETIC [Suspect]
     Indication: MIGRAINE
     Dosage: 46 UNITS, SINGLE
     Route: 030
     Dates: start: 20131014, end: 20131014

REACTIONS (1)
  - Pruritus generalised [Unknown]
